FAERS Safety Report 6559136-1 (Version None)
Quarter: 2010Q1

REPORT INFORMATION
  Report Type: 
  Country: None (occurrence: None)
  Receive Date: 20100129
  Receipt Date: 20100119
  Transmission Date: 20100710
  Serious: Yes (Hospitalization, Other)
  Sender: FDA-Public Use
  Company Number: FR-ABBOTT-10P-056-0620592-00

PATIENT
  Age: 55 Year
  Sex: Male

DRUGS (11)
  1. HUMIRA [Suspect]
     Indication: PSORIASIS
     Route: 058
     Dates: start: 20090201, end: 20091101
  2. TRIATEC [Concomitant]
     Indication: HYPERTENSION
     Route: 048
  3. PRAVASTATIN [Concomitant]
     Indication: DRUG USE FOR UNKNOWN INDICATION
     Route: 048
  4. LASILIX [Concomitant]
     Indication: HYPERTENSION
     Route: 048
  5. PREVISCAN [Concomitant]
     Indication: CORONARY ARTERIAL STENT INSERTION
     Route: 048
  6. NEXIUM [Concomitant]
     Indication: DRUG USE FOR UNKNOWN INDICATION
     Route: 048
  7. DOLIPRANE [Concomitant]
     Indication: DRUG USE FOR UNKNOWN INDICATION
     Route: 048
  8. LANTUS [Concomitant]
     Indication: DIABETES MELLITUS
     Route: 058
  9. NOVORAPID [Concomitant]
     Indication: DIABETES MELLITUS
     Route: 058
  10. FORLAX [Concomitant]
     Indication: DRUG USE FOR UNKNOWN INDICATION
  11. DIFFU-K [Concomitant]
     Indication: DRUG USE FOR UNKNOWN INDICATION

REACTIONS (7)
  - ACUTE PULMONARY OEDEMA [None]
  - CARDIAC FAILURE [None]
  - DYSPNOEA EXERTIONAL [None]
  - GAIT DISTURBANCE [None]
  - PSORIASIS [None]
  - PULMONARY HYPERTENSION [None]
  - WEIGHT INCREASED [None]
